FAERS Safety Report 4350952-3 (Version None)
Quarter: 2004Q2

REPORT INFORMATION
  Report Type: 
  Country: None (occurrence: None)
  Receive Date: 20040430
  Receipt Date: 20040428
  Transmission Date: 20050107
  Serious: Yes (Hospitalization)
  Sender: FDA-Public Use
  Company Number: FR-GLAXOSMITHKLINE-B0331360A

PATIENT
  Age: 28 Year
  Sex: Male
  Weight: 93 kg

DRUGS (1)
  1. CLAMOXYL [Suspect]
     Indication: HYPERTHERMIA
     Dosage: 2CAP TWICE PER DAY
     Route: 048
     Dates: start: 20040401, end: 20040402

REACTIONS (6)
  - DERMATITIS EXFOLIATIVE [None]
  - DIARRHOEA [None]
  - GENERALISED ERYTHEMA [None]
  - LEUKOCYTOSIS [None]
  - OEDEMA PERIPHERAL [None]
  - PYREXIA [None]
